FAERS Safety Report 16225444 (Version 1)
Quarter: 2019Q2

REPORT INFORMATION
  Report Type: Spontaneous
  Country: DE (occurrence: DE)
  Receive Date: 20190422
  Receipt Date: 20190422
  Transmission Date: 20190711
  Serious: Yes (Hospitalization, Other)
  Sender: FDA-Public Use
  Company Number: DE-B.I. PHARMACEUTICALS,INC./RIDGEFIELD-2019-12-001293

PATIENT
  Age: 57 Year
  Sex: Male
  Weight: 107 kg

DRUGS (2)
  1. JARDIANCE [Suspect]
     Active Substance: EMPAGLIFLOZIN
     Indication: TYPE 1 DIABETES MELLITUS
     Dosage: 25 MG
     Route: 048
     Dates: start: 2016, end: 2019
  2. SITAGLIPTIN [Concomitant]
     Active Substance: SITAGLIPTIN
     Indication: PRODUCT USED FOR UNKNOWN INDICATION
     Route: 065

REACTIONS (7)
  - Tachycardia [Recovered/Resolved]
  - Agitation [Recovered/Resolved]
  - Dyspnoea [Recovered/Resolved]
  - Diabetic ketoacidosis [Recovered/Resolved]
  - General physical condition decreased [Recovered/Resolved]
  - Hyperglycaemia [Recovered/Resolved]
  - Tachypnoea [Recovered/Resolved]

NARRATIVE: CASE EVENT DATE: 20190320
